FAERS Safety Report 9290562 (Version 1)
Quarter: 2013Q2

REPORT INFORMATION
  Report Type: Spontaneous
  Country: AR (occurrence: AR)
  Receive Date: 20130515
  Receipt Date: 20130515
  Transmission Date: 20140414
  Serious: Yes (Other)
  Sender: FDA-Public Use
  Company Number: AR-PFIZER INC-2013145124

PATIENT
  Age: 7 Year
  Sex: Female

DRUGS (3)
  1. GENOTROPIN [Suspect]
     Indication: TURNER^S SYNDROME
     Dosage: 1 TO 1.4 MG, 6XWEEK
     Dates: start: 20080601
  2. GENOTROPIN [Suspect]
     Dosage: 1 TO 1.4 MG, 6XWEEK
     Dates: start: 20130416
  3. GENOTROPIN [Suspect]
     Dosage: 1 TO 1.4 MG, 6XWEEK

REACTIONS (2)
  - Herpes zoster [Recovered/Resolved]
  - Pyrexia [Recovered/Resolved]
